FAERS Safety Report 8723481 (Version 2)
Quarter: 2013Q4

REPORT INFORMATION
  Report Type: Report from Study
  Country: JP (occurrence: JP)
  Receive Date: 20120814
  Receipt Date: 20131108
  Transmission Date: 20140711
  Serious: Yes (Hospitalization)
  Sender: FDA-Public Use
  Company Number: JP-009507513-1207JPN000024

PATIENT
  Age: 69 Year
  Sex: Female
  Weight: 55 kg

DRUGS (3)
  1. REBETOL [Suspect]
     Indication: HEPATITIS C
     Dosage: 200MG IN MORNING AND 400MG IN EVENING
     Route: 048
     Dates: start: 20100520, end: 20111013
  2. FERON [Suspect]
     Indication: HEPATITIS C
     Dosage: 6 MILLION IU, ONCE
     Route: 041
     Dates: start: 20100520, end: 20100603
  3. FERON [Suspect]
     Dosage: 6 MILLION IU, TIW
     Route: 041
     Dates: start: 20100604, end: 20111007

REACTIONS (4)
  - Platelet count decreased [Recovering/Resolving]
  - Decreased appetite [Recovered/Resolved]
  - Anxiety [Recovered/Resolved]
  - Hypoproteinaemia [Recovering/Resolving]
